FAERS Safety Report 16716042 (Version 1)
Quarter: 2019Q4

REPORT INFORMATION
  Report Type: Spontaneous
  Country: US (occurrence: US)
  Receive Date: 20190817
  Receipt Date: 20190817
  Transmission Date: 20200122
  Serious: No
  Sender: FDA-Public Use
  Company Number: None

PATIENT
  Age: 70 Year
  Sex: Female
  Weight: 85.5 kg

DRUGS (1)
  1. VITAMIN D [Suspect]
     Active Substance: VITAMIN D NOS
     Indication: VITAMIN D DECREASED
     Dosage: ?          QUANTITY:24 CAPSULE(S);OTHER FREQUENCY:2 TIMES PER WEEK;?
     Route: 048
     Dates: start: 20190802, end: 20190816

REACTIONS (12)
  - Rash [None]
  - Blister [None]
  - Skin weeping [None]
  - Scab [None]
  - Arthralgia [None]
  - Dyspnoea [None]
  - Rash pruritic [None]
  - Chest pain [None]
  - Dysgeusia [None]
  - Ear swelling [None]
  - Ear infection [None]
  - Constipation [None]

NARRATIVE: CASE EVENT DATE: 20190816
